FAERS Safety Report 14653225 (Version 1)
Quarter: 2018Q1

REPORT INFORMATION
  Report Type: Spontaneous
  Country: FR (occurrence: FR)
  Receive Date: 20180319
  Receipt Date: 20180319
  Transmission Date: 20180509
  Serious: Yes (Hospitalization)
  Sender: FDA-Public Use
  Company Number: FR-ABBVIE-18P-056-2286463-00

PATIENT
  Age: 56 Year
  Sex: Male

DRUGS (1)
  1. VALPROATE SODIUM. [Suspect]
     Active Substance: VALPROATE SODIUM
     Indication: EPILEPSY
     Route: 048

REACTIONS (6)
  - Disorientation [Recovered/Resolved]
  - Hyperammonaemic encephalopathy [Recovered/Resolved]
  - Asthenia [Recovered/Resolved]
  - Incoherent [Recovered/Resolved]
  - Hyperammonaemia [Recovered/Resolved]
  - Vomiting [Recovered/Resolved]

NARRATIVE: CASE EVENT DATE: 20180123
